FAERS Safety Report 5854582-3 (Version None)
Quarter: 2008Q3

REPORT INFORMATION
  Report Type: 
  Country: None (occurrence: None)
  Receive Date: 20080822
  Receipt Date: 20080812
  Transmission Date: 20090109
  Serious: Yes (Disabling, Other)
  Sender: FDA-Public Use
  Company Number: GR-PFIZER INC-2008066996

PATIENT
  Age: 73 Year
  Sex: Male
  Weight: 70 kg

DRUGS (7)
  1. ALDACTONE [Suspect]
     Indication: CARDIAC FAILURE
     Route: 048
  2. LASIX [Suspect]
     Indication: CARDIAC FAILURE
     Route: 048
  3. DIGOXIN [Concomitant]
     Indication: CARDIAC FAILURE
  4. SINTROM [Concomitant]
     Indication: ATRIAL FIBRILLATION
  5. PANCORAN [Concomitant]
     Indication: CORONARY ARTERY DISEASE
  6. SIMVASTATIN [Concomitant]
     Indication: CORONARY ARTERY DISEASE
  7. MADOPAR [Concomitant]

REACTIONS (6)
  - AKINESIA [None]
  - BRADYKINESIA [None]
  - PARKINSONISM [None]
  - SALIVARY HYPERSECRETION [None]
  - SPINAL DEFORMITY [None]
  - TREMOR [None]
